FAERS Safety Report 7323983-9 (Version None)
Quarter: 2011Q1

REPORT INFORMATION
  Report Type: 
  Country: None (occurrence: None)
  Receive Date: 20110301
  Receipt Date: 20110224
  Transmission Date: 20110831
  Serious: Yes (Hospitalization, Other)
  Sender: FDA-Public Use
  Company Number: GB-BRISTOL-MYERS SQUIBB COMPANY-15252760

PATIENT
  Age: 73 Year
  Sex: Male
  Weight: 67 kg

DRUGS (14)
  1. LORATADINE [Concomitant]
  2. LANSOPRAZOLE [Concomitant]
     Dosage: ONGOING
     Dates: start: 20100731
  3. DEXAMETHASONE [Concomitant]
     Dates: start: 20100731
  4. ENSURE [Concomitant]
  5. DOXYCYCLINE [Concomitant]
     Dates: start: 20100812
  6. NECITUMUMAB [Suspect]
     Indication: NON-SMALL CELL LUNG CANCER
     Dosage: LAST DOSE ON 04AUG10 (CYCLE 3) RESUMED ON 25AUG2010
     Route: 042
     Dates: start: 20100714
  7. AQUEOUS CREAM [Concomitant]
     Dates: start: 20100724
  8. METOCLOPRAMIDE HCL [Concomitant]
  9. MORPHINE [Concomitant]
     Dates: start: 20100816
  10. GLYCEROL [Concomitant]
     Dates: start: 20100816
  11. CISPLATIN [Suspect]
     Indication: NON-SMALL CELL LUNG CANCER
     Dosage: LAST DOSE ON 04AUG10 (CYCLE 2), LAST DOSE ON 25AUG2010,43D
     Route: 042
     Dates: start: 20100714, end: 20100825
  12. ANADIN [Concomitant]
     Dosage: ONGOING
     Dates: start: 20100521
  13. GEMZAR [Suspect]
     Indication: NON-SMALL CELL LUNG CANCER
     Dosage: LAST DOSE ON 04AUG10 (CYCLE 3) RESUMED ON 25AUG2010
     Route: 042
     Dates: start: 20100714
  14. ONDANSERTRON HCL [Concomitant]
     Dates: start: 20100714

REACTIONS (4)
  - DEHYDRATION [None]
  - PULMONARY EMBOLISM [None]
  - PNEUMONIA [None]
  - ACUTE MYOCARDIAL INFARCTION [None]
